FAERS Safety Report 13555126 (Version 1)
Quarter: 2017Q2

REPORT INFORMATION
  Report Type: Report from Study
  Country: None (occurrence: IT)
  Receive Date: 20170517
  Receipt Date: 20170517
  Transmission Date: 20170830
  Serious: Yes (Death)
  Sender: FDA-Public Use
  Company Number: IT-ABBVIE-17K-083-1978132-00

PATIENT
  Age: 77 Year
  Sex: Female
  Weight: 52 kg

DRUGS (1)
  1. DUODOPA [Suspect]
     Active Substance: CARBIDOPA\LEVODOPA
     Indication: PARKINSON^S DISEASE
     Dosage: MD 5+3, CR 3.1, ED 3.5
     Route: 050
     Dates: start: 20080603, end: 20170507

REACTIONS (2)
  - Head injury [Fatal]
  - Fall [Fatal]

NARRATIVE: CASE EVENT DATE: 20170507
